FAERS Safety Report 8830681 (Version 1)
Quarter: 2012Q4

REPORT INFORMATION
  Report Type: 
  Country: SE (occurrence: SE)
  Receive Date: 20121009
  Receipt Date: 20121009
  Transmission Date: 20130627
  Serious: Yes (Other)
  Sender: FDA-Public Use
  Company Number: CHPA2012SE020097

PATIENT
  Sex: Female

DRUGS (4)
  1. VOLTAREN EMULGEL [Suspect]
     Indication: PAIN IN EXTREMITY
     Dosage: Unk, Unk
     Route: 061
  2. HIRUDOID [Concomitant]
     Dosage: 50 g
  3. AMLODIPIN ^ORIFARM^ [Concomitant]
     Indication: HYPERTENSION
     Dosage: 5 mg, QD
  4. VIAREX [Concomitant]

REACTIONS (6)
  - Herpes zoster [Recovered/Resolved]
  - Acne [Recovered/Resolved]
  - Rash erythematous [Recovered/Resolved]
  - Pruritus [Recovered/Resolved]
  - Expired drug administered [Unknown]
  - Overdose [Unknown]
